FAERS Safety Report 6067767-0 (Version None)
Quarter: 2009Q1

REPORT INFORMATION
  Report Type: 
  Country: None (occurrence: None)
  Receive Date: 20090203
  Receipt Date: 20090123
  Transmission Date: 20090719
  Serious: Yes (Death)
  Sender: FDA-Public Use
  Company Number: US025327

PATIENT
  Age: 65 Year
  Sex: Female

DRUGS (2)
  1. ACTIQ [Suspect]
     Indication: CANCER PAIN
     Dosage: BUCCAL
     Route: 002
     Dates: start: 20060901, end: 20061125
  2. DURAGESIC-100 [Concomitant]

REACTIONS (2)
  - MALIGNANT NEOPLASM PROGRESSION [None]
  - SMALL CELL LUNG CANCER STAGE UNSPECIFIED [None]
